FAERS Safety Report 9161357 (Version 1)
Quarter: 2013Q1

REPORT INFORMATION
  Report Type: Spontaneous
  Country: US (occurrence: US)
  Receive Date: 20130313
  Receipt Date: 20130313
  Transmission Date: 20140127
  Serious: Yes (Other)
  Sender: FDA-Public Use
  Company Number: US-ABBOTT-13P-163-1060493-00

PATIENT
  Age: 19 Year
  Sex: Male

DRUGS (1)
  1. ADALIMUMAB [Suspect]
     Indication: CROHN^S DISEASE
     Dosage: INTERMITTENTLY

REACTIONS (2)
  - Carcinoid tumour pulmonary [Recovered/Resolved]
  - Bladder transitional cell carcinoma [Unknown]
